FAERS Safety Report 5017933-8 (Version None)
Quarter: 2006Q2

REPORT INFORMATION
  Report Type: 
  Country: None (occurrence: None)
  Receive Date: 20060605
  Receipt Date: 20060516
  Transmission Date: 20061013
  Serious: Yes (Other)
  Sender: FDA-Public Use
  Company Number: US-GLAXOSMITHKLINE-A0605814A

PATIENT
  Age: 61 Year
  Sex: Female

DRUGS (3)
  1. ADVAIR DISKUS 100/50 [Suspect]
     Indication: BRONCHITIS
     Dosage: 1PUFF TWICE PER DAY
     Route: 055
     Dates: start: 20060512, end: 20060515
  2. ANTIBIOTIC [Concomitant]
  3. PRILOSEC [Concomitant]

REACTIONS (4)
  - ASTHMA [None]
  - BRONCHITIS [None]
  - COUGH [None]
  - NASAL CONGESTION [None]
